FAERS Safety Report 15530373 (Version 1)
Quarter: 2018Q4

REPORT INFORMATION
  Report Type: Spontaneous
  Country: US (occurrence: US)
  Receive Date: 20181018
  Receipt Date: 20181018
  Transmission Date: 20190205
  Serious: No
  Sender: FDA-Public Use
  Company Number: US-JUBILANT PHARMA LTD-2018US001006

PATIENT
  Sex: Female

DRUGS (2)
  1. ALBUMIN AGGREGATED [Suspect]
     Active Substance: ALBUMIN MACROAGGREGATED HUMAN SERUM
     Indication: PRODUCT USED FOR UNKNOWN INDICATION
     Dosage: UNK
  2. DIETHYLENETRIAMINEPENTAACETIC ACID [Suspect]
     Active Substance: PENTETIC ACID
     Indication: PRODUCT USED FOR UNKNOWN INDICATION
     Dosage: UNK

REACTIONS (2)
  - Pruritus [Not Recovered/Not Resolved]
  - Urticaria [Not Recovered/Not Resolved]
